FAERS Safety Report 5400992-8 (Version None)
Quarter: 2007Q3

REPORT INFORMATION
  Report Type: 
  Country: None (occurrence: None)
  Receive Date: 20070730
  Receipt Date: 20070727
  Transmission Date: 20080115
  Serious: Yes (Death)
  Sender: FDA-Public Use
  Company Number: JP-BRISTOL-MYERS SQUIBB COMPANY-13859947

PATIENT
  Age: 6 Decade
  Sex: Male

DRUGS (3)
  1. BLEOMYCIN [Suspect]
     Indication: LUNG NEOPLASM MALIGNANT
     Route: 042
  2. CISPLATIN [Concomitant]
     Route: 042
  3. VEPESID [Concomitant]
     Route: 042

REACTIONS (1)
  - INTERSTITIAL LUNG DISEASE [None]
